FAERS Safety Report 9477067 (Version 2)
Quarter: 2013Q3

REPORT INFORMATION
  Report Type: Spontaneous
  Country: US (occurrence: US)
  Receive Date: 20130826
  Receipt Date: 20130910
  Transmission Date: 20140515
  Serious: Yes (Other)
  Sender: FDA-Public Use
  Company Number: US-009507513-1308USA008897

PATIENT
  Sex: Male

DRUGS (1)
  1. COPPERTONE SPORT DRY LOTION SPF 15 [Suspect]
     Route: 061

REACTIONS (1)
  - Neoplasm malignant [Unknown]
